FAERS Safety Report 12504062 (Version 1)
Quarter: 2016Q2

REPORT INFORMATION
  Report Type: Spontaneous
  Country: FR (occurrence: FR)
  Receive Date: 20160628
  Receipt Date: 20160628
  Transmission Date: 20160815
  Serious: Yes (Other)
  Sender: FDA-Public Use
  Company Number: FR-PFIZER INC-3158388

PATIENT
  Age: 81 Year
  Sex: Male

DRUGS (9)
  1. SUPRANE [Suspect]
     Active Substance: DESFLURANE
     Dosage: UNK
     Route: 055
     Dates: start: 20160119, end: 20160119
  2. AVANAFIL [Concomitant]
     Active Substance: AVANAFIL
     Dosage: UNK
  3. PREVISCAN [Concomitant]
     Active Substance: FLUINDIONE
     Dosage: 1 DF, 1X/DAY
  4. PROPOFOL LIPURO [Concomitant]
     Active Substance: PROPOFOL
     Indication: INDUCTION OF ANAESTHESIA
     Dosage: 150 MG, UNK
     Dates: start: 20160119
  5. RAPIFEN [Concomitant]
     Active Substance: ALFENTANIL HYDROCHLORIDE
     Indication: INDUCTION OF ANAESTHESIA
     Dosage: 1.5 MG, UNK
     Dates: start: 20160119
  6. AMLODIPINE [Concomitant]
     Active Substance: AMLODIPINE BESYLATE
     Dosage: 5 MG, 1X/DAY
  7. INDAPAMIDE. [Concomitant]
     Active Substance: INDAPAMIDE
     Dosage: 1.25 MG, 1X/DAY
  8. ATRACURIUM BESILATE [Suspect]
     Active Substance: ATRACURIUM BESYLATE
     Dosage: 20 MG, UNK
     Route: 042
     Dates: start: 20160119, end: 20160119
  9. SOTALOL. [Concomitant]
     Active Substance: SOTALOL
     Dosage: 80 MG, 2X/DAY

REACTIONS (1)
  - Circulatory collapse [Recovered/Resolved]

NARRATIVE: CASE EVENT DATE: 20160119
